FAERS Safety Report 9272611 (Version 1)
Quarter: 2013Q2

REPORT INFORMATION
  Report Type: Spontaneous
  Country: US (occurrence: US)
  Receive Date: 20130506
  Receipt Date: 20130506
  Transmission Date: 20140414
  Serious: No
  Sender: FDA-Public Use
  Company Number: US-ASTRAZENECA-2013SE01811

PATIENT
  Age: 56 Year
  Sex: Female

DRUGS (3)
  1. PRILOSEC OTC [Suspect]
     Indication: GASTROOESOPHAGEAL REFLUX DISEASE
     Dosage: N
     Route: 048
     Dates: start: 20121224, end: 20121224
  2. CARDIAC THERAPY [Concomitant]
     Indication: CARDIAC DISORDER
  3. ANALGESICS [Concomitant]
     Indication: PAIN

REACTIONS (2)
  - Ageusia [Recovered/Resolved]
  - Dyspepsia [Recovered/Resolved]
